FAERS Safety Report 13436394 (Version 1)
Quarter: 2017Q2

REPORT INFORMATION
  Report Type: Spontaneous
  Country: US (occurrence: US)
  Receive Date: 20170412
  Receipt Date: 20170412
  Transmission Date: 20170830
  Serious: No
  Sender: FDA-Public Use
  Company Number: US-SA-2016SA137678

PATIENT
  Age: 70 Year
  Sex: Female

DRUGS (1)
  1. ALLEGRA [Suspect]
     Active Substance: FEXOFENADINE HYDROCHLORIDE
     Indication: HYPERSENSITIVITY
     Dosage: DOSE AND FREQUENCY : 1 TABLET IN THE MORNING AND 1 TABLET AT NIGHT
     Route: 048

REACTIONS (1)
  - Extra dose administered [Unknown]
